FAERS Safety Report 17235361 (Version 1)
Quarter: 2020Q1

REPORT INFORMATION
  Report Type: Spontaneous
  Country: NL (occurrence: NL)
  Receive Date: 20200106
  Receipt Date: 20200106
  Transmission Date: 20200409
  Serious: Yes (Life-Threatening, Hospitalization, Other)
  Sender: FDA-Public Use
  Company Number: NL-AUROBINDO-AUR-APL-2020-000293

PATIENT
  Sex: Male
  Weight: 36 kg

DRUGS (1)
  1. OLANZAPINE 10 MG, FILM COATED TABLETS [Suspect]
     Active Substance: OLANZAPINE
     Indication: DECREASED APPETITE
     Dosage: 1 DOSAGE FORM, ONCE A DAY (1 TIME PER DAY, WAS REDUCED FROM 10MG TO 2.5MG PER DAY)
     Route: 065
     Dates: start: 20160616, end: 20190311

REACTIONS (2)
  - Aggression [Recovered/Resolved]
  - Psychotic disorder [Recovered/Resolved]
